FAERS Safety Report 5138689-4 (Version None)
Quarter: 2006Q4

REPORT INFORMATION
  Report Type: 
  Country: None (occurrence: None)
  Receive Date: 20061023
  Receipt Date: 20061012
  Transmission Date: 20070319
  Serious: Yes (Hospitalization, Other)
  Sender: FDA-Public Use
  Company Number: 2006PV021669

PATIENT
  Age: 74 Year
  Sex: Male
  Weight: 108.8633 kg

DRUGS (5)
  1. BYETTA [Suspect]
     Indication: DIABETES MELLITUS NON-INSULIN-DEPENDENT
     Dosage: 5 MCG; SC
     Route: 058
     Dates: start: 20060101, end: 20060101
  2. HUMALOG [Concomitant]
  3. HUMULIN 50/50 [Concomitant]
  4. PRANDIN [Concomitant]
  5. LANTUS [Concomitant]

REACTIONS (5)
  - ABASIA [None]
  - ABDOMINAL PAIN [None]
  - JOINT SWELLING [None]
  - NAUSEA [None]
  - RETINAL DETACHMENT [None]
